FAERS Safety Report 4291018-0 (Version None)
Quarter: 2004Q1

REPORT INFORMATION
  Report Type: 
  Country: None (occurrence: None)
  Receive Date: 20040209
  Receipt Date: 20040127
  Transmission Date: 20041129
  Serious: Yes (Death)
  Sender: FDA-Public Use
  Company Number: 200411135GDDC

PATIENT
  Sex: Female

DRUGS (8)
  1. LASIX [Suspect]
     Dosage: INJ
  2. ATROPINE SULFATE [Concomitant]
  3. DEXTROSE 5% AND SODIUM CHLORIDE 0.45% IN PLASTIC CONTAINER [Concomitant]
  4. INDOMETACIN (MEZOLIN) [Concomitant]
  5. CALCIUM GLUBIONATE (CALCIUM-SANDOZ) [Concomitant]
  6. ADRENALINE [Concomitant]
  7. THEOPHYLLINE, ETOFYLLINE (DERIPHYLLIN) [Concomitant]
  8. PENTAZOCINE HYDROCHLORIDE [Concomitant]

REACTIONS (1)
  - DEATH [None]
